FAERS Safety Report 9205487 (Version 2)
Quarter: 2013Q2

REPORT INFORMATION
  Report Type: Spontaneous
  Country: US (occurrence: US)
  Receive Date: 20130403
  Receipt Date: 20130422
  Transmission Date: 20140414
  Serious: Yes (Death)
  Sender: FDA-Public Use
  Company Number: US-BIOGENIDEC-2013BI028860

PATIENT
  Age: 49 Year
  Sex: Female

DRUGS (11)
  1. AVONEX [Suspect]
     Indication: MULTIPLE SCLEROSIS
     Route: 030
     Dates: start: 20060316, end: 20060905
  2. AVONEX [Suspect]
     Indication: MULTIPLE SCLEROSIS
     Route: 030
     Dates: start: 20061002
  3. AVONEX [Suspect]
     Indication: MULTIPLE SCLEROSIS
     Route: 030
     Dates: start: 20100527
  4. ADDERALL [Concomitant]
     Dates: start: 20110923
  5. ADVIL [Concomitant]
     Indication: PAIN
     Route: 048
     Dates: start: 20070117
  6. ADVIL [Concomitant]
     Indication: PAIN
     Route: 048
     Dates: start: 20070117
  7. METFORMIN HCL [Concomitant]
     Route: 048
     Dates: start: 20081030
  8. ROZEREM [Concomitant]
     Route: 048
     Dates: start: 20091012
  9. VITAMIN D [Concomitant]
     Route: 048
  10. ALBUTEROL [Concomitant]
  11. OMEPRAZOLE [Concomitant]

REACTIONS (4)
  - Hysterectomy [Unknown]
  - Lung neoplasm malignant [Unknown]
  - Pituitary tumour benign [Unknown]
  - Death [Fatal]
